FAERS Safety Report 6379334-X (Version None)
Quarter: 2009Q3

REPORT INFORMATION
  Report Type: 
  Country: None (occurrence: None)
  Receive Date: 20090928
  Receipt Date: 20090914
  Transmission Date: 20100115
  Serious: Yes (Other)
  Sender: FDA-Public Use
  Company Number: CA-GENENTECH-279458

PATIENT
  Sex: Female
  Weight: 87.302 kg

DRUGS (2)
  1. XOLAIR [Suspect]
     Indication: ASTHMA
     Dosage: 150 MG, UNK
     Route: 058
     Dates: start: 20080121
  2. XOLAIR [Suspect]
     Dosage: UNK
     Dates: start: 20080121

REACTIONS (4)
  - INFLUENZA [None]
  - PNEUMONIA [None]
  - RESPIRATORY DISORDER [None]
  - WHEEZING [None]
